FAERS Safety Report 6443257-8 (Version None)
Quarter: 2009Q4

REPORT INFORMATION
  Report Type: 
  Country: None (occurrence: None)
  Receive Date: 20091117
  Receipt Date: 20091109
  Transmission Date: 20100525
  Serious: Yes (Life-Threatening, Hospitalization)
  Sender: FDA-Public Use
  Company Number: GXKR2009US12313

PATIENT
  Age: 56 Year
  Sex: Male

DRUGS (3)
  1. CIPROFLOXACIN (NGX) [Suspect]
     Indication: UPPER RESPIRATORY TRACT INFECTION
     Dosage: 400 MG, BID
  2. METHADONE (NGX) [Interacting]
     Indication: DRUG DEPENDENCE
     Dosage: 120 MG
     Route: 048
  3. METHADONE (NGX) [Interacting]
     Dosage: 80 MG, DAILY
     Route: 048

REACTIONS (9)
  - DRUG INTERACTION [None]
  - ELECTROCARDIOGRAM QT PROLONGED [None]
  - ENDOTRACHEAL INTUBATION [None]
  - HYPERKALAEMIA [None]
  - LETHARGY [None]
  - SINUS BRADYCARDIA [None]
  - SYNCOPE [None]
  - TORSADE DE POINTES [None]
  - VENTRICULAR TACHYCARDIA [None]
